FAERS Safety Report 4991698-8 (Version None)
Quarter: 2006Q2

REPORT INFORMATION
  Report Type: 
  Country: None (occurrence: None)
  Receive Date: 20060504
  Receipt Date: 20060503
  Transmission Date: 20061013
  Serious: Yes (Hospitalization)
  Sender: FDA-Public Use
  Company Number: US-GLAXOSMITHKLINE-A0604219A

PATIENT
  Sex: Male

DRUGS (3)
  1. WELLBUTRIN [Suspect]
     Indication: DEPRESSION
     Dosage: 150MG PER DAY
     Route: 048
     Dates: start: 20060202, end: 20060401
  2. ALCOHOL [Suspect]
     Route: 048
  3. LEXAPRO [Concomitant]

REACTIONS (3)
  - HALLUCINATION [None]
  - MEMORY IMPAIRMENT [None]
  - SLEEP WALKING [None]
